FAERS Safety Report 8297338-7 (Version None)
Quarter: 2012Q2

REPORT INFORMATION
  Report Type: 
  Country: None (occurrence: None)
  Receive Date: 20120419
  Receipt Date: 20120413
  Transmission Date: 20120825
  Serious: Yes (Hospitalization, Other)
  Sender: FDA-Public Use
  Company Number: US-AMGEN-USASP2011046403

PATIENT
  Age: 59 Year
  Sex: Male
  Weight: 120.36 kg

DRUGS (4)
  1. METHOTREXATE SODIUM [Concomitant]
     Indication: RHEUMATOID ARTHRITIS
     Dosage: 2.5 MG, QWK
     Route: 048
     Dates: end: 20110701
  2. PREDNISONE TAB [Concomitant]
     Indication: PAIN
     Dosage: 5 MG, BID
     Route: 048
     Dates: start: 20110815
  3. ENBREL [Suspect]
     Dosage: 50 MG, QWK
     Dates: start: 20110601
  4. ENBREL [Suspect]
     Indication: RHEUMATOID ARTHRITIS
     Dosage: 50 MG, QWK
     Route: 058
     Dates: start: 20110706, end: 20111010

REACTIONS (11)
  - PANCREATITIS [None]
  - VOMITING [None]
  - HEADACHE [None]
  - CHOLECYSTITIS [None]
  - PRURITUS [None]
  - DIARRHOEA [None]
  - DRUG INEFFECTIVE [None]
  - NAUSEA [None]
  - BLOOD GLUCOSE INCREASED [None]
  - LIVER DISORDER [None]
  - RHEUMATOID ARTHRITIS [None]
